FAERS Safety Report 6913715-8 (Version None)
Quarter: 2010Q3

REPORT INFORMATION
  Report Type: 
  Country: None (occurrence: None)
  Receive Date: 20100719
  Receipt Date: 20090310
  Transmission Date: 20110219
  Serious: No
  Sender: FDA-Public Use
  Company Number: 2009-01071

PATIENT
  Age: 29 Year
  Sex: Male
  Weight: 83.9154 kg

DRUGS (1)
  1. ZICAM INTENSE SINUS RELIEF [Suspect]
     Dosage: BID X 3 DAYS

REACTIONS (1)
  - ANOSMIA [None]
